FAERS Safety Report 13046847 (Version 3)
Quarter: 2017Q1

REPORT INFORMATION
  Report Type: Spontaneous
  Country: JP (occurrence: JP)
  Receive Date: 20161220
  Receipt Date: 20170222
  Transmission Date: 20170428
  Serious: Yes (Hospitalization, Other)
  Sender: FDA-Public Use
  Company Number: JP-ELI_LILLY_AND_COMPANY-JP201612004347

PATIENT
  Age: 83 Year
  Sex: Female
  Weight: 40.7 kg

DRUGS (8)
  1. CYRAMZA [Suspect]
     Active Substance: RAMUCIRUMAB
     Indication: RECTAL CANCER RECURRENT
     Dosage: 260 MG, OTHER
     Route: 042
     Dates: start: 20161109, end: 20161109
  2. ISOVORIN                           /06682103/ [Suspect]
     Active Substance: LEUCOVORIN CALCIUM
     Indication: RECTAL CANCER RECURRENT
     Dosage: 200 MG, OTHER
     Route: 042
     Dates: start: 20161109, end: 20161109
  3. DEXART [Concomitant]
     Active Substance: DEXAMETHASONE SODIUM PHOSPHATE
     Indication: PROPHYLAXIS OF NAUSEA AND VOMITING
     Dosage: UNK MG, UNK
     Route: 042
     Dates: start: 20161109, end: 20161109
  4. CELECOX [Concomitant]
     Active Substance: CELECOXIB
     Indication: LUMBAR SPINAL STENOSIS
     Dosage: 1 DF, PRN
     Route: 048
     Dates: start: 20161017
  5. IRINOTECAN [Suspect]
     Active Substance: IRINOTECAN
     Indication: RECTAL CANCER RECURRENT
     Dosage: 140 MG, OTHER
     Route: 042
     Dates: start: 20161109, end: 20161109
  6. 5-FU                               /00098801/ [Suspect]
     Active Substance: FLUOROURACIL
     Indication: RECTAL CANCER RECURRENT
     Dosage: 2300 MG, OTHER
     Route: 042
     Dates: start: 20161109, end: 20161111
  7. POLARAMINE [Concomitant]
     Active Substance: DEXCHLORPHENIRAMINE MALEATE
     Indication: PROPHYLAXIS
     Dosage: UNK
     Route: 042
     Dates: start: 20161109, end: 20161109
  8. ALOXI [Concomitant]
     Active Substance: PALONOSETRON HYDROCHLORIDE
     Indication: PROPHYLAXIS OF NAUSEA AND VOMITING
     Dosage: UNK
     Route: 042
     Dates: start: 20161109, end: 20161109

REACTIONS (4)
  - Neutrophil count decreased [Recovered/Resolved]
  - Pleural effusion [Recovered/Resolved]
  - Generalised oedema [Recovered/Resolved]
  - Proteinuria [Recovered/Resolved]

NARRATIVE: CASE EVENT DATE: 20161130
